FAERS Safety Report 7176388-8 (Version None)
Quarter: 2010Q4

REPORT INFORMATION
  Report Type: 
  Country: None (occurrence: None)
  Receive Date: 20101220
  Receipt Date: 20101209
  Transmission Date: 20110411
  Serious: Yes (Other)
  Sender: FDA-Public Use
  Company Number: BR-US-EMD SERONO, INC.-7032079

PATIENT
  Sex: Female

DRUGS (8)
  1. REBIF [Suspect]
     Indication: RELAPSING-REMITTING MULTIPLE SCLEROSIS
     Dates: start: 20041201
  2. AZATHIOPRIN [Concomitant]
  3. VENALOT [Concomitant]
  4. CARBAMAZEPINE [Concomitant]
  5. OSCAL [Concomitant]
  6. OXYBUTYNIN CHLORIDE [Concomitant]
  7. DIAZEPAM [Concomitant]
  8. BACLOFEN [Concomitant]

REACTIONS (3)
  - HAEMORRHOIDS [None]
  - MULTIPLE SCLEROSIS RELAPSE [None]
  - THROMBOSIS [None]
